FAERS Safety Report 12381903 (Version 2)
Quarter: 2016Q2

REPORT INFORMATION
  Report Type: Spontaneous
  Country: GB (occurrence: GB)
  Receive Date: 20160518
  Receipt Date: 20160530
  Transmission Date: 20160815
  Serious: Yes (Other)
  Sender: FDA-Public Use
  Company Number: GB-JNJFOC-20160509263

PATIENT
  Age: 33 Year
  Sex: Male

DRUGS (1)
  1. REMICADE [Suspect]
     Active Substance: INFLIXIMAB
     Indication: CROHN^S DISEASE
     Dosage: 4 YEARS AGO
     Route: 042

REACTIONS (6)
  - Herpes virus infection [Unknown]
  - Streptococcal infection [Recovering/Resolving]
  - Ichthyosis [Unknown]
  - Alopecia [Unknown]
  - Alanine aminotransferase increased [Recovered/Resolved]
  - Plantar fasciitis [Unknown]

NARRATIVE: CASE EVENT DATE: 201604
